FAERS Safety Report 8567720-9 (Version None)
Quarter: 2012Q3

REPORT INFORMATION
  Report Type: 
  Country: None (occurrence: None)
  Receive Date: 20120803
  Receipt Date: 20120723
  Transmission Date: 20120928
  Serious: Yes (Life-Threatening, Hospitalization, Other)
  Sender: FDA-Public Use
  Company Number: US-MERCK-1207USA011033

PATIENT

DRUGS (1)
  1. ZOCOR [Suspect]
     Dosage: 20 MG, HS
     Route: 048

REACTIONS (4)
  - RENAL FAILURE ACUTE [None]
  - DRUG SCREEN POSITIVE [None]
  - FALL [None]
  - RHABDOMYOLYSIS [None]
